FAERS Safety Report 12567117 (Version 3)
Quarter: 2017Q3

REPORT INFORMATION
  Report Type: Spontaneous
  Country: US (occurrence: US)
  Receive Date: 20160718
  Receipt Date: 20170823
  Transmission Date: 20171127
  Serious: Yes (Hospitalization)
  Sender: FDA-Public Use
  Company Number: US-PFIZER INC-2016338074

PATIENT
  Age: 48 Year
  Sex: Male
  Weight: 93 kg

DRUGS (3)
  1. RAPAMUNE [Suspect]
     Active Substance: SIROLIMUS
     Indication: RENAL TRANSPLANT
     Dosage: 4 MG, 1X/DAY (TWO 2MG TABLETS AT NOON)
     Route: 048
     Dates: start: 20011008
  2. PREDNISONE. [Concomitant]
     Active Substance: PREDNISONE
     Indication: TRANSPLANT
     Dosage: 5 MG, 1X/DAY
  3. PROGRAF [Concomitant]
     Active Substance: TACROLIMUS\TACROLIMUS ANHYDROUS
     Indication: TRANSPLANT
     Dosage: 5 MG, 1X/DAY

REACTIONS (3)
  - Nasopharyngitis [Recovering/Resolving]
  - Dysphonia [Unknown]
  - Cellulitis [Recovering/Resolving]

NARRATIVE: CASE EVENT DATE: 20160704
